FAERS Safety Report 17103517 (Version 1)
Quarter: 2019Q4

REPORT INFORMATION
  Report Type: Spontaneous
  Country: US (occurrence: US)
  Receive Date: 20191107
  Receipt Date: 20191107
  Transmission Date: 20200122
  Serious: Yes (Hospitalization)
  Sender: FDA-Public Use
  Company Number: None

PATIENT
  Age: 50 Year

DRUGS (39)
  1. OXYCODONE AND ACETAMINOPHEN [Concomitant]
     Active Substance: ACETAMINOPHEN\OXYCODONE HYDROCHLORIDE
  2. ALPRAZOLAM. [Concomitant]
     Active Substance: ALPRAZOLAM
  3. TIZANIDINE. [Concomitant]
     Active Substance: TIZANIDINE
  4. METFORMIN [Concomitant]
     Active Substance: METFORMIN HYDROCHLORIDE
  5. FENTANYL. [Concomitant]
     Active Substance: FENTANYL
  6. AMLODIPINE [Concomitant]
     Active Substance: AMLODIPINE BESYLATE
  7. BUTORPHANOL [Concomitant]
     Active Substance: BUTORPHANOL
  8. DOXYCYCLINE. [Concomitant]
     Active Substance: DOXYCYCLINE
  9. LINZESS [Concomitant]
     Active Substance: LINACLOTIDE
  10. SYNTHROID [Concomitant]
     Active Substance: LEVOTHYROXINE SODIUM
  11. BD PEN NEEDL [Concomitant]
  12. KETOROLAC [Concomitant]
     Active Substance: KETOROLAC TROMETHAMINE
  13. A-HYDROCORT [Concomitant]
     Active Substance: HYDROCORTISONE SODIUM SUCCINATE
  14. BENICAR [Concomitant]
     Active Substance: OLMESARTAN MEDOXOMIL
  15. ZONISAMIDE. [Concomitant]
     Active Substance: ZONISAMIDE
  16. NORDITROPIN [Suspect]
     Active Substance: SOMATROPIN
     Indication: PRODUCT USED FOR UNKNOWN INDICATION
     Route: 058
     Dates: start: 20170425
  17. ARMOUR THYRO [Concomitant]
  18. CAMBIA [Concomitant]
     Active Substance: DICLOFENAC POTASSIUM
  19. ZTLIDO [Concomitant]
     Active Substance: LIDOCAINE
  20. ALLERGY RELF [Concomitant]
  21. CALCIFEROL [Concomitant]
  22. VICTOZA [Concomitant]
     Active Substance: LIRAGLUTIDE
  23. DYMISTA [Concomitant]
     Active Substance: AZELASTINE HYDROCHLORIDE\FLUTICASONE PROPIONATE
  24. BENAZEPRIL [Concomitant]
     Active Substance: BENAZEPRIL HYDROCHLORIDE
  25. VITAMIN D [Concomitant]
     Active Substance: VITAMIN D NOS
  26. OZEMPIC [Concomitant]
     Active Substance: SEMAGLUTIDE
  27. VALACYCLOVIR [Concomitant]
     Active Substance: VALACYCLOVIR HYDROCHLORIDE
  28. METOPROL TAR [Concomitant]
  29. PANTOPRAZOLE [Concomitant]
     Active Substance: PANTOPRAZOLE
  30. METOPROL SUC [Concomitant]
  31. ONZETRA XSAI [Concomitant]
  32. RAMIPRIL. [Concomitant]
     Active Substance: RAMIPRIL
  33. CLONIDINE. [Concomitant]
     Active Substance: CLONIDINE
  34. SUCRALFATE. [Concomitant]
     Active Substance: SUCRALFATE
  35. VENLAFAXINE [Concomitant]
     Active Substance: VENLAFAXINE HYDROCHLORIDE
  36. LIDODERM [Concomitant]
     Active Substance: LIDOCAINE
  37. BENZONATATE. [Concomitant]
     Active Substance: BENZONATATE
  38. PROGESTERONE. [Concomitant]
     Active Substance: PROGESTERONE
  39. ESTRADIOL. [Concomitant]
     Active Substance: ESTRADIOL

REACTIONS (1)
  - Malaise [None]
